FAERS Safety Report 15615464 (Version 3)
Quarter: 2019Q2

REPORT INFORMATION
  Report Type: Spontaneous
  Country: US (occurrence: US)
  Receive Date: 20181114
  Receipt Date: 20190502
  Transmission Date: 20190711
  Serious: No
  Sender: FDA-Public Use
  Company Number: US-CONCORDIA PHARMACEUTICALS INC.-GSH201811-003918

PATIENT
  Sex: Female

DRUGS (8)
  1. PLAQUENIL [Suspect]
     Active Substance: HYDROXYCHLOROQUINE SULFATE
     Route: 065
  2. LEFLUNOMIDE. [Concomitant]
     Active Substance: LEFLUNOMIDE
     Dates: start: 2016, end: 201708
  3. HUMIRA [Concomitant]
     Active Substance: ADALIMUMAB
     Dates: start: 201610, end: 201703
  4. XELJANZ [Concomitant]
     Active Substance: TOFACITINIB CITRATE
  5. METHOTREXATE. [Concomitant]
     Active Substance: METHOTREXATE
     Dates: start: 201510, end: 201601
  6. ORENCIA [Concomitant]
     Active Substance: ABATACEPT
     Dates: start: 201802, end: 201808
  7. ENBREL [Concomitant]
     Active Substance: ETANERCEPT
     Dates: start: 201808, end: 201810
  8. ACTEMRA [Concomitant]
     Active Substance: TOCILIZUMAB
     Dates: start: 201705, end: 201712

REACTIONS (1)
  - Drug ineffective [Unknown]
